FAERS Safety Report 18576346 (Version 2)
Quarter: 2021Q1

REPORT INFORMATION
  Report Type: Report from Study
  Country: US (occurrence: US)
  Receive Date: 20201203
  Receipt Date: 20210208
  Transmission Date: 20210419
  Serious: Yes (Hospitalization)
  Sender: FDA-Public Use
  Company Number: US-GILEAD-2020-0506580

PATIENT
  Age: 67 Year
  Sex: Female
  Weight: 64 kg

DRUGS (81)
  1. CYCLOPHOSPHAMIDE. [Suspect]
     Active Substance: CYCLOPHOSPHAMIDE
     Dosage: ^846^
     Route: 042
     Dates: start: 20201120, end: 20201120
  2. ZOFRAN [Concomitant]
     Active Substance: ONDANSETRON HYDROCHLORIDE
     Dosage: 16,MG,DAILY
     Route: 042
     Dates: start: 20201119, end: 20201121
  3. TYLENOL [Concomitant]
     Active Substance: ACETAMINOPHEN
     Dosage: 650,MG,ONCE
     Route: 048
     Dates: start: 20201119, end: 20201119
  4. TYLENOL [Concomitant]
     Active Substance: ACETAMINOPHEN
     Dosage: 650,MG,ONCE
     Route: 048
     Dates: start: 20201124, end: 20201124
  5. TYLENOL [Concomitant]
     Active Substance: ACETAMINOPHEN
     Dosage: 650,MG,ONCE
     Route: 048
     Dates: start: 20201216, end: 20201216
  6. NS [Concomitant]
     Active Substance: SODIUM CHLORIDE
     Dosage: 1000,ML,ONCE
     Route: 040
     Dates: start: 20201130, end: 20201130
  7. ONDANSETRON [Concomitant]
     Active Substance: ONDANSETRON
     Dosage: 8,MG,AS NECESSARY
     Route: 042
     Dates: start: 20201123, end: 20201214
  8. ACTEMRA [Concomitant]
     Active Substance: TOCILIZUMAB
     Dosage: 523.2,MG,ONCE
     Route: 042
     Dates: start: 20201129, end: 20201130
  9. DECADRON [Concomitant]
     Active Substance: DEXAMETHASONE
     Dosage: 10,MG,ONCE
     Route: 042
     Dates: start: 20201127, end: 20201127
  10. DECADRON [Concomitant]
     Active Substance: DEXAMETHASONE
     Dosage: 10,MG,FOUR TIMES DAILY
     Route: 042
     Dates: start: 20201203, end: 20201204
  11. FLUDARABINE [Suspect]
     Active Substance: FLUDARABINE PHOSPHATE
     Dosage: ^51^
     Route: 042
     Dates: start: 20201120, end: 20201120
  12. KEPPRA [Concomitant]
     Active Substance: LEVETIRACETAM
     Dosage: 1000,MG,TWICE DAILY
     Route: 048
     Dates: start: 20201208, end: 20201214
  13. ATIVAN [Concomitant]
     Active Substance: LORAZEPAM
     Dosage: 0.5,MG,TWICE DAILY
     Route: 042
     Dates: start: 20201202, end: 20201208
  14. ZOSYN [Concomitant]
     Active Substance: PIPERACILLIN SODIUM\TAZOBACTAM SODIUM
     Dosage: 3.375,G,ONCE
     Route: 042
     Dates: start: 20201127, end: 20201127
  15. DECADRON [Concomitant]
     Active Substance: DEXAMETHASONE
     Dosage: 8,MG,ONCE
     Route: 042
     Dates: start: 20201128, end: 20201128
  16. DIPHENHYDRAMINE. [Concomitant]
     Active Substance: DIPHENHYDRAMINE
     Dosage: 25,MG,ONCE
     Route: 048
     Dates: start: 20201119, end: 20201119
  17. FLUDARABINE [Suspect]
     Active Substance: FLUDARABINE PHOSPHATE
     Dosage: ^30^
     Route: 042
     Dates: start: 20201121, end: 20201121
  18. NS [Concomitant]
     Active Substance: SODIUM CHLORIDE
     Dosage: 1000,ML,ONCE
     Route: 040
     Dates: start: 20201127, end: 20201127
  19. NS [Concomitant]
     Active Substance: SODIUM CHLORIDE
     Dosage: 500,ML,ONCE
     Route: 040
     Dates: start: 20201212, end: 20201212
  20. NS [Concomitant]
     Active Substance: SODIUM CHLORIDE
     Dosage: 150,OTHER,CONTINUOUS
     Route: 042
     Dates: start: 20201119, end: 20201119
  21. POTASSIUM CHLORIDE. [Concomitant]
     Active Substance: POTASSIUM CHLORIDE
     Dosage: 10?60,OTHER,AS NECESSARY
     Route: 042
     Dates: start: 20201123, end: 20201214
  22. ZYLOPRIM [Concomitant]
     Active Substance: ALLOPURINOL
     Dosage: 300,MG,ONCE
     Route: 048
     Dates: start: 20201121, end: 20201121
  23. ZOVIRAX [Concomitant]
     Active Substance: ACYCLOVIR
     Dosage: 425,MG,TWICE DAILY
     Route: 042
     Dates: start: 20201130, end: 20201208
  24. KEPPRA [Concomitant]
     Active Substance: LEVETIRACETAM
     Dosage: 1000,MG,TWICE DAILY
     Route: 042
     Dates: start: 20201130, end: 20201208
  25. MAGNESIUM SULFATE. [Concomitant]
     Active Substance: MAGNESIUM SULFATE
     Dosage: 8,OTHER,AS NECESSARY
     Route: 042
     Dates: start: 20201123, end: 20201214
  26. NEUPOGEN [Concomitant]
     Active Substance: FILGRASTIM
     Dosage: 300,OTHER,ONCE
     Route: 058
     Dates: start: 20201222, end: 20201222
  27. ACTEMRA [Concomitant]
     Active Substance: TOCILIZUMAB
     Dosage: 512.8,MG,ONCE
     Route: 042
     Dates: start: 20201127, end: 20201127
  28. CYCLOPHOSPHAMIDE. [Suspect]
     Active Substance: CYCLOPHOSPHAMIDE
     Indication: BONE MARROW CONDITIONING REGIMEN
     Dosage: ^846^
     Route: 042
     Dates: start: 20201119, end: 20201119
  29. FLUDARABINE [Suspect]
     Active Substance: FLUDARABINE PHOSPHATE
     Indication: BONE MARROW CONDITIONING REGIMEN
     Dosage: ^51^
     Route: 042
     Dates: start: 20201119, end: 20201119
  30. EMEND (FOSAPREPITANT DIMEGLUMINE) [Concomitant]
     Active Substance: FOSAPREPITANT DIMEGLUMINE
     Dosage: 150,MG,ONCE
     Route: 042
     Dates: start: 20201119, end: 20201119
  31. NS [Concomitant]
     Active Substance: SODIUM CHLORIDE
     Dosage: 500,ML,ONCE
     Route: 040
     Dates: start: 20201215, end: 20201215
  32. POTASSIUM CHLORIDE. [Concomitant]
     Active Substance: POTASSIUM CHLORIDE
     Dosage: 20?40,OTHER,AS NECESSARY
     Route: 048
     Dates: start: 20201121, end: 20201121
  33. ZOVIRAX [Concomitant]
     Active Substance: ACYCLOVIR
     Dosage: 800,MG,TWICE DAILY
     Route: 048
     Dates: start: 20201208, end: 20201214
  34. VALIUM [Concomitant]
     Active Substance: DIAZEPAM
     Dosage: 10,MG,TWICE DAILY
     Route: 048
     Dates: start: 20201208, end: 20201214
  35. KEPPRA [Concomitant]
     Active Substance: LEVETIRACETAM
     Dosage: 1000,MG,TWICE DAILY
     Route: 048
     Dates: start: 20201129, end: 20201130
  36. MELATONIN [Concomitant]
     Active Substance: MELATONIN
     Dosage: 10,MG,DAILY
     Route: 048
     Dates: start: 20201210, end: 20201214
  37. IMODIUM [Concomitant]
     Active Substance: LOPERAMIDE HYDROCHLORIDE
     Dosage: 2,MG,AS NECESSARY
     Route: 048
     Dates: start: 20201123, end: 20201214
  38. DECADRON [Concomitant]
     Active Substance: DEXAMETHASONE
     Dosage: 10,MG,FOUR TIMES DAILY
     Route: 042
     Dates: start: 20201129, end: 20201130
  39. DECADRON [Concomitant]
     Active Substance: DEXAMETHASONE
     Dosage: 10,MG,FOUR TIMES DAILY
     Route: 042
     Dates: start: 20201201, end: 20201201
  40. DECADRON [Concomitant]
     Active Substance: DEXAMETHASONE
     Dosage: 10,MG,THREE TIMES DAILY
     Route: 042
     Dates: start: 20201204, end: 20201205
  41. DIPHENHYDRAMINE. [Concomitant]
     Active Substance: DIPHENHYDRAMINE
     Dosage: 12.5,MG,ONCE
     Route: 042
     Dates: start: 20201124, end: 20201124
  42. CYCLOPHOSPHAMIDE. [Suspect]
     Active Substance: CYCLOPHOSPHAMIDE
     Dosage: ^500^
     Route: 042
     Dates: start: 20201121, end: 20201121
  43. RITUXIMAB. [Suspect]
     Active Substance: RITUXIMAB
     Dosage: ^633.75^
     Route: 042
     Dates: start: 20201216, end: 20201216
  44. TYLENOL [Concomitant]
     Active Substance: ACETAMINOPHEN
     Dosage: 650,MG,AS NECESSARY
     Route: 048
     Dates: start: 20201123, end: 20201214
  45. NS [Concomitant]
     Active Substance: SODIUM CHLORIDE
     Dosage: 1000,ML,ONCE
     Route: 040
     Dates: start: 20201121, end: 20201121
  46. NS [Concomitant]
     Active Substance: SODIUM CHLORIDE
     Dosage: 500,ML,ONCE
     Route: 040
     Dates: start: 20201210, end: 20201210
  47. ZOVIRAX [Concomitant]
     Active Substance: ACYCLOVIR
     Dosage: 800,MG,TWICE DAILY
     Route: 048
     Dates: start: 20201123, end: 20201130
  48. PEPCID [Concomitant]
     Active Substance: FAMOTIDINE
     Dosage: 20,MG,TWICE DAILY
     Route: 042
     Dates: start: 20201130, end: 20201208
  49. PEPCID [Concomitant]
     Active Substance: FAMOTIDINE
     Dosage: 20,MG,TWICE DAILY
     Route: 048
     Dates: start: 20201208, end: 20201214
  50. KEPPRA [Concomitant]
     Active Substance: LEVETIRACETAM
     Dosage: 500,MG,TWICE DAILY
     Route: 048
     Dates: start: 20201123, end: 20201129
  51. MELATONIN [Concomitant]
     Active Substance: MELATONIN
     Dosage: 3,MG,AS NECESSARY
     Route: 048
     Dates: start: 20201123, end: 20201214
  52. IMODIUM [Concomitant]
     Active Substance: LOPERAMIDE HYDROCHLORIDE
     Dosage: 4,MG,AS NECESSARY
     Route: 048
     Dates: start: 20201123, end: 20201214
  53. DECADRON [Concomitant]
     Active Substance: DEXAMETHASONE
     Dosage: 10,MG,TWICE DAILY
     Route: 042
     Dates: start: 20201205, end: 20201206
  54. ANTICOAGULANT CITRATE DEXTROSE SOLUTION USP (ACD) FORMULA A [Concomitant]
     Dosage: 200,OTHER,ONCE
     Route: 042
     Dates: start: 20201106, end: 20201106
  55. POTASSIUM CHLORIDE. [Concomitant]
     Active Substance: POTASSIUM CHLORIDE
     Dosage: 10,OTHER,AS NECESSARY
     Route: 042
     Dates: start: 20201123, end: 20201214
  56. PEPCID [Concomitant]
     Active Substance: FAMOTIDINE
     Dosage: 20,MG,TWICE DAILY
     Route: 048
     Dates: start: 20201123, end: 20201130
  57. ATIVAN [Concomitant]
     Active Substance: LORAZEPAM
     Dosage: 1,MG,AS NECESSARY
     Route: 048
     Dates: start: 20201123, end: 20201210
  58. NEUPOGEN [Concomitant]
     Active Substance: FILGRASTIM
     Dosage: 300,OTHER,DAILY
     Route: 058
     Dates: start: 20201125, end: 20201203
  59. NEUPOGEN [Concomitant]
     Active Substance: FILGRASTIM
     Dosage: 300,OTHER,DAILY
     Route: 058
     Dates: start: 20201209, end: 20201212
  60. NEUPOGEN [Concomitant]
     Active Substance: FILGRASTIM
     Dosage: 300,OTHER,DAILY
     Route: 058
     Dates: start: 20201214, end: 20201214
  61. ZOSYN [Concomitant]
     Active Substance: PIPERACILLIN SODIUM\TAZOBACTAM SODIUM
     Dosage: 3.375,G,THREE TIMES DAILY
     Route: 042
     Dates: start: 20201127, end: 20201204
  62. ACTEMRA [Concomitant]
     Active Substance: TOCILIZUMAB
     Dosage: 521.6,MG,TWICE DAILY
     Route: 042
     Dates: start: 20201129, end: 20201129
  63. RITUXIMAB. [Suspect]
     Active Substance: RITUXIMAB
     Indication: B-CELL LYMPHOMA REFRACTORY
     Dosage: ^633.75^
     Route: 042
     Dates: start: 20201119, end: 20201119
  64. NS [Concomitant]
     Active Substance: SODIUM CHLORIDE
     Dosage: 1000,ML,ONCE
     Route: 040
     Dates: start: 20201126, end: 20201126
  65. NS [Concomitant]
     Active Substance: SODIUM CHLORIDE
     Dosage: 150,OTHER,CONTINUOUS
     Route: 042
     Dates: start: 20201119, end: 20201119
  66. POTASSIUM CHLORIDE. [Concomitant]
     Active Substance: POTASSIUM CHLORIDE
     Dosage: 20,OTHER,AS NECESSARY
     Route: 042
     Dates: start: 20201123, end: 20201214
  67. ATIVAN [Concomitant]
     Active Substance: LORAZEPAM
     Dosage: 0.5,MG,AS NECESSARY
     Route: 048
     Dates: start: 20201123, end: 20201210
  68. DECADRON [Concomitant]
     Active Substance: DEXAMETHASONE
     Dosage: 10,MG,ONCE
     Route: 042
     Dates: start: 20201129, end: 20201129
  69. DECADRON [Concomitant]
     Active Substance: DEXAMETHASONE
     Dosage: 10,MG,DAILY
     Route: 042
     Dates: start: 20201206, end: 20201208
  70. AXICABTAGENE CILOLEUCEL [Suspect]
     Active Substance: AXICABTAGENE CILOLEUCEL
     Indication: B-CELL LYMPHOMA REFRACTORY
     Dosage: ^68^, AS PER PROTOCOL
     Route: 042
     Dates: start: 20201124, end: 20201124
  71. RED BLOOD CELLS [Concomitant]
     Active Substance: HUMAN RED BLOOD CELL
     Dosage: 286,ML,ONCE
     Route: 042
     Dates: start: 20201127, end: 20201127
  72. ZYLOPRIM [Concomitant]
     Active Substance: ALLOPURINOL
     Dosage: 300,MG,DAILY
     Route: 048
     Dates: start: 20201123, end: 20201123
  73. VALIUM [Concomitant]
     Active Substance: DIAZEPAM
     Dosage: 10,MG,TWICE DAILY
     Route: 048
     Dates: start: 20201123, end: 20201130
  74. KEPPRA [Concomitant]
     Active Substance: LEVETIRACETAM
     Dosage: 500,MG,DAILY
     Route: 048
     Dates: start: 20201209, end: 20201210
  75. POTASSIUM CHLORIDE AND SODIUM CHLORIDE [Concomitant]
     Active Substance: POTASSIUM CHLORIDE\SODIUM CHLORIDE
     Dosage: 20,OTHER,CONTINUOUS
     Route: 042
     Dates: start: 20201123, end: 20201209
  76. ATIVAN [Concomitant]
     Active Substance: LORAZEPAM
     Dosage: 0.25?1,MG,AS NECESSARY
     Route: 042
     Dates: start: 20201123, end: 20201208
  77. ATIVAN [Concomitant]
     Active Substance: LORAZEPAM
     Dosage: 0.5,MG,ONCE
     Route: 042
     Dates: start: 20201201, end: 20201201
  78. ONDANSETRON [Concomitant]
     Active Substance: ONDANSETRON
     Dosage: 16,MG,DAILY
     Route: 042
     Dates: start: 20201124, end: 20201126
  79. DECADRON [Concomitant]
     Active Substance: DEXAMETHASONE
     Dosage: 10,MG,TWICE DAILY
     Route: 042
     Dates: start: 20201210, end: 20201213
  80. DECADRON [Concomitant]
     Active Substance: DEXAMETHASONE
     Dosage: 4,MG,THREE TIMES DAILY
     Route: 048
     Dates: start: 20201214, end: 20201214
  81. DIPHENHYDRAMINE. [Concomitant]
     Active Substance: DIPHENHYDRAMINE
     Dosage: 25,MG,ONCE
     Route: 048
     Dates: start: 20201216, end: 20201216

REACTIONS (2)
  - Tremor [Recovered/Resolved]
  - Aphasia [Recovered/Resolved]

NARRATIVE: CASE EVENT DATE: 20201130
